FAERS Safety Report 6804553-5 (Version None)
Quarter: 2010Q2

REPORT INFORMATION
  Report Type: 
  Country: None (occurrence: None)
  Receive Date: 20100628
  Receipt Date: 20070409
  Transmission Date: 20101027
  Serious: No
  Sender: FDA-Public Use
  Company Number: US-PFIZER INC-2007028682

PATIENT
  Sex: Female
  Weight: 59.87 kg

DRUGS (5)
  1. GEODON [Suspect]
     Indication: ANXIETY
     Dates: start: 20070301
  2. GEODON [Suspect]
     Indication: DEPRESSION
  3. CELEXA [Concomitant]
  4. WELLBUTRIN [Concomitant]
  5. FOSAMAX [Concomitant]

REACTIONS (3)
  - DIZZINESS [None]
  - HEADACHE [None]
  - NAUSEA [None]
